FAERS Safety Report 10100988 (Version 1)
Quarter: 2014Q2

REPORT INFORMATION
  Report Type: Spontaneous
  Country: CN (occurrence: CN)
  Receive Date: 20140424
  Receipt Date: 20140424
  Transmission Date: 20141212
  Serious: Yes (Hospitalization)
  Sender: FDA-Public Use
  Company Number: CN-PFIZER INC-2014112935

PATIENT
  Age: 81 Year
  Sex: Female

DRUGS (1)
  1. CORDARONE [Suspect]
     Indication: SINUS ARRHYTHMIA
     Dosage: 0.2 G, DAILY
     Route: 048
     Dates: start: 20071111, end: 20130719

REACTIONS (2)
  - Palpitations [Recovering/Resolving]
  - Chest discomfort [Recovering/Resolving]
